FAERS Safety Report 6142185-5 (Version None)
Quarter: 2009Q2

REPORT INFORMATION
  Report Type: 
  Country: None (occurrence: None)
  Receive Date: 20090402
  Receipt Date: 20090324
  Transmission Date: 20091009
  Serious: Yes (Hospitalization)
  Sender: FDA-Public Use
  Company Number: US-BAUSCH-2009BL001231

PATIENT
  Age: 55 Year
  Sex: Male
  Weight: 77 kg

DRUGS (5)
  1. LOTEMAX [Suspect]
     Indication: EYE INJURY
     Route: 047
     Dates: start: 20041014
  2. LOTEMAX [Suspect]
     Indication: POSTOPERATIVE CARE
     Route: 047
     Dates: start: 20041014
  3. LOTEMAX [Suspect]
     Route: 047
     Dates: start: 20090106, end: 20090317
  4. LOTEMAX [Suspect]
     Route: 047
     Dates: start: 20090106, end: 20090317
  5. VITAMINS [Concomitant]

REACTIONS (7)
  - DELUSION [None]
  - HEADACHE [None]
  - HYPERTENSION [None]
  - INSOMNIA [None]
  - PARANOIA [None]
  - SUICIDAL IDEATION [None]
  - SUICIDE ATTEMPT [None]
